FAERS Safety Report 6726647-5 (Version None)
Quarter: 2010Q2

REPORT INFORMATION
  Report Type: 
  Country: None (occurrence: None)
  Receive Date: 20100514
  Receipt Date: 20100507
  Transmission Date: 20101027
  Serious: Yes (Hospitalization)
  Sender: FDA-Public Use
  Company Number: JP-ABBOTT-10P-087-0643665-00

PATIENT
  Age: 63 Year
  Sex: Male

DRUGS (8)
  1. CLARITHROMYCIN [Suspect]
     Indication: NASOPHARYNGITIS
     Dosage: 200MG QD
     Route: 048
     Dates: start: 20100406, end: 20100408
  2. CLARITHROMYCIN [Suspect]
     Indication: COUGH
  3. MUCODYNE [Suspect]
     Indication: NASOPHARYNGITIS
     Dosage: 500MG QD
     Route: 048
     Dates: start: 20100406, end: 20100408
  4. MUCODYNE [Suspect]
     Indication: COUGH
  5. MEDICON [Suspect]
     Indication: NASOPHARYNGITIS
     Dosage: 15MG QD
     Route: 048
     Dates: start: 20100406, end: 20100408
  6. MEDICON [Suspect]
     Indication: COUGH
  7. TRANSAMIN [Suspect]
     Indication: NASOPHARYNGITIS
     Dosage: 250MG QD
     Route: 048
     Dates: start: 20100406, end: 20100408
  8. TRANSAMIN [Suspect]
     Indication: COUGH

REACTIONS (1)
  - RENAL IMPAIRMENT [None]
